FAERS Safety Report 9259537 (Version 2)
Quarter: 2013Q2

REPORT INFORMATION
  Report Type: Spontaneous
  Country: US (occurrence: US)
  Receive Date: 20130429
  Receipt Date: 20130529
  Transmission Date: 20140414
  Serious: Yes (Other)
  Sender: FDA-Public Use
  Company Number: US-009507513-1304USA015710

PATIENT
  Sex: Male

DRUGS (2)
  1. VICTRELIS [Suspect]
     Dosage: UNK
     Dates: start: 20130315, end: 20130416
  2. PEGASYS [Suspect]

REACTIONS (1)
  - Blindness [Unknown]
